FAERS Safety Report 11236575 (Version 1)
Quarter: 2015Q3

REPORT INFORMATION
  Report Type: Spontaneous
  Country: US (occurrence: US)
  Receive Date: 20150702
  Receipt Date: 20150702
  Transmission Date: 20151125
  Serious: No
  Sender: FDA-Public Use
  Company Number: US-TAKEDA-2015TUS004617

PATIENT
  Sex: Female
  Weight: 126.98 kg

DRUGS (4)
  1. CONTRAVE [Suspect]
     Active Substance: BUPROPION HYDROCHLORIDE\NALTREXONE HYDROCHLORIDE
     Indication: OBESITY
     Dosage: 1 DF, QD IN MORNING
     Route: 048
     Dates: start: 201503, end: 201503
  2. CONTRAVE [Suspect]
     Active Substance: BUPROPION HYDROCHLORIDE\NALTREXONE HYDROCHLORIDE
     Dosage: ONE TABLET IN MORNING AND ONE TABLET IN EVENING
     Route: 048
     Dates: start: 201503, end: 201503
  3. CONTRAVE [Suspect]
     Active Substance: BUPROPION HYDROCHLORIDE\NALTREXONE HYDROCHLORIDE
     Dosage: TWO TABLET IN MORNING AND ONE TABLET IN EVENING
     Route: 048
     Dates: start: 201503, end: 201503
  4. CONTRAVE [Suspect]
     Active Substance: BUPROPION HYDROCHLORIDE\NALTREXONE HYDROCHLORIDE
     Dosage: TWO TABLETS IN THE MORNING AND TWO TABLETS IN EVENING
     Route: 048
     Dates: start: 201503, end: 20150407

REACTIONS (2)
  - Nausea [Unknown]
  - Vomiting [Unknown]
